FAERS Safety Report 17978391 (Version 5)
Quarter: 2023Q1

REPORT INFORMATION
  Report Type: Spontaneous
  Country: US (occurrence: US)
  Receive Date: 20200703
  Receipt Date: 20230217
  Transmission Date: 20230417
  Serious: No
  Sender: FDA-Public Use
  Company Number: US-VERTEX PHARMACEUTICALS-2020-013870

PATIENT
  Sex: Male

DRUGS (1)
  1. TRIKAFTA [Suspect]
     Active Substance: ELEXACAFTOR\IVACAFTOR\TEZACAFTOR
     Indication: Cystic fibrosis
     Dosage: STANDARD FULL DOSING
     Route: 048
     Dates: start: 201911

REACTIONS (6)
  - Aphasia [Recovering/Resolving]
  - Major depression [Recovered/Resolved]
  - Irritability [Recovered/Resolved]
  - Somnolence [Recovering/Resolving]
  - Bradyphrenia [Recovering/Resolving]
  - Sleep disorder [Recovering/Resolving]

NARRATIVE: CASE EVENT DATE: 20190101
